FAERS Safety Report 4962363-8 (Version None)
Quarter: 2006Q2

REPORT INFORMATION
  Report Type: 
  Country: None (occurrence: None)
  Receive Date: 20060404
  Receipt Date: 20060330
  Transmission Date: 20061013
  Serious: Yes (Hospitalization)
  Sender: FDA-Public Use
  Company Number: 2006SE01861

PATIENT
  Age: 27240 Day
  Sex: Male
  Weight: 87 kg

DRUGS (14)
  1. CANDESARTAN CILEXETIL [Suspect]
     Indication: CARDIAC FAILURE
     Route: 048
     Dates: start: 20051123, end: 20051207
  2. CANDESARTAN CILEXETIL [Suspect]
     Route: 048
     Dates: start: 20051208, end: 20051221
  3. CANDESARTAN CILEXETIL [Suspect]
     Route: 048
     Dates: start: 20060104, end: 20060210
  4. AMARYL [Concomitant]
     Indication: DIABETES MELLITUS
     Route: 048
     Dates: start: 20040801
  5. CORDAREX [Concomitant]
     Indication: VENTRICULAR EXTRASYSTOLES
     Route: 048
     Dates: start: 20040801
  6. NEBILET [Concomitant]
     Indication: HYPERTENSION
     Route: 048
     Dates: start: 20040801
  7. SPIRIVA [Concomitant]
     Indication: CHRONIC OBSTRUCTIVE PULMONARY DISEASE
     Route: 048
     Dates: start: 20040801
  8. FUROSEMIDE AL [Concomitant]
     Indication: CARDIAC FAILURE
     Route: 048
     Dates: start: 20040801
  9. SIMVAHEXAL [Concomitant]
     Indication: HYPERCHOLESTEROLAEMIA
     Route: 048
     Dates: start: 20040801
  10. OMNIC [Concomitant]
     Indication: PROSTATIC DISORDER
     Route: 048
     Dates: start: 20040801
  11. MARCUMAR [Concomitant]
     Indication: ATRIAL FIBRILLATION
     Route: 048
     Dates: start: 20040801
  12. ALLOPURINOL [Concomitant]
     Indication: HYPERURICAEMIA
     Route: 048
     Dates: start: 20040801
  13. RAMIPRIL HEXAL [Concomitant]
     Indication: HYPERTENSION
     Route: 048
     Dates: start: 20051006
  14. FUROSEMIDE AL [Concomitant]
     Route: 048
     Dates: start: 20040801

REACTIONS (3)
  - CARDIAC DISORDER [None]
  - HYPOTENSION [None]
  - SYNCOPE [None]
